FAERS Safety Report 9462940 (Version 2)
Quarter: 2013Q3

REPORT INFORMATION
  Report Type: Spontaneous
  Country: US (occurrence: US)
  Receive Date: 20130816
  Receipt Date: 20130829
  Transmission Date: 20140515
  Serious: Yes (Other)
  Sender: FDA-Public Use
  Company Number: ALCN2013US004089

PATIENT
  Age: 81 Year
  Sex: Female

DRUGS (6)
  1. SIMBRINZA [Suspect]
     Dosage: 1 GTT, BID
     Route: 047
     Dates: start: 20130718, end: 20130721
  2. LATANOPROST [Concomitant]
     Dosage: 1 GTT, QHS
     Route: 047
     Dates: start: 2012
  3. SIMVASTATIN [Concomitant]
     Dosage: 40 MG, QHS
     Route: 048
  4. ATENOLOL [Concomitant]
     Dosage: 5 MG, QD
     Route: 048
  5. LISOPRIL [Concomitant]
     Dosage: UNK UNK, QD
     Route: 048
  6. ASPIRIN [Concomitant]
     Dosage: 81 MG, QHS
     Route: 048

REACTIONS (5)
  - Depression [Recovered/Resolved]
  - Dizziness [Recovered/Resolved]
  - Hypotension [Recovered/Resolved]
  - Dry mouth [Recovered/Resolved]
  - Myalgia [Recovered/Resolved]
